FAERS Safety Report 16617258 (Version 1)
Quarter: 2019Q3

REPORT INFORMATION
  Report Type: Report from Study
  Country: CA (occurrence: CA)
  Receive Date: 20190723
  Receipt Date: 20190723
  Transmission Date: 20191004
  Serious: Yes (Other)
  Sender: FDA-Public Use
  Company Number: CA-JNJFOC-20190718906

PATIENT
  Age: 54 Year
  Sex: Female
  Weight: 95 kg

DRUGS (2)
  1. STELARA [Suspect]
     Active Substance: USTEKINUMAB
     Indication: PSORIATIC ARTHROPATHY
     Route: 058
     Dates: start: 20190404
  2. STELARA [Suspect]
     Active Substance: USTEKINUMAB
     Indication: CUTANEOUS LUPUS ERYTHEMATOSUS

REACTIONS (2)
  - Cutaneous lupus erythematosus [Unknown]
  - Psoriatic arthropathy [Unknown]

NARRATIVE: CASE EVENT DATE: 2019
